FAERS Safety Report 23972754 (Version 1)
Quarter: 2024Q2

REPORT INFORMATION
  Report Type: Spontaneous
  Country: US (occurrence: None)
  Receive Date: 20240613
  Receipt Date: 20240613
  Transmission Date: 20240716
  Serious: Yes (Disabling)
  Sender: FDA-Public Use
  Company Number: None

PATIENT
  Age: 60 Year
  Sex: Male
  Weight: 92.7 kg

DRUGS (9)
  1. ORGOVYX [Suspect]
     Active Substance: RELUGOLIX
     Indication: Prostate cancer
  2. AMLODAPINE [Concomitant]
  3. ELIQUIS [Concomitant]
     Active Substance: APIXABAN
  4. ORGOVYX [Concomitant]
     Active Substance: RELUGOLIX
  5. VITAMIN B [Concomitant]
     Active Substance: VITAMIN B
  6. VITAMIN C [Concomitant]
     Active Substance: ASCORBIC ACID
  7. VITAMIN D [Concomitant]
     Active Substance: VITAMIN D NOS
  8. MULTI [Concomitant]
  9. OMEGA 3 [Concomitant]
     Active Substance: CAPSAICIN

REACTIONS (3)
  - Neuralgia [None]
  - Muscular weakness [None]
  - Muscular weakness [None]

NARRATIVE: CASE EVENT DATE: 20240322
